FAERS Safety Report 8769976 (Version 1)
Quarter: 2012Q4

REPORT INFORMATION
  Report Type: 
  Country: US (occurrence: US)
  Receive Date: 20120906
  Receipt Date: 20120906
  Transmission Date: 20130627
  Serious: No
  Sender: FDA-Public Use
  Company Number: US-JHP PHARMACEUTICALS, LLC-JHP201200095

PATIENT
  Age: 17 Year
  Sex: Female
  Weight: 74.83 kg

DRUGS (1)
  1. BREVITAL SODIUM [Suspect]
     Indication: INDUCTION OF ANAESTHESIA
     Dosage: 170 mg, UNK
     Dates: start: 20110901, end: 20110901

REACTIONS (1)
  - Drug ineffective [Recovered/Resolved]
